FAERS Safety Report 15931106 (Version 2)
Quarter: 2019Q1

REPORT INFORMATION
  Report Type: Report from Study
  Country: IT (occurrence: IT)
  Receive Date: 20190207
  Receipt Date: 20190321
  Transmission Date: 20190417
  Serious: Yes (Death, Life-Threatening, Hospitalization)
  Sender: FDA-Public Use
  Company Number: IT-ROCHE-2249410

PATIENT
  Age: 48 Year
  Sex: Male
  Weight: 76 kg

DRUGS (33)
  1. OMEPRAZOLE. [Concomitant]
     Active Substance: OMEPRAZOLE
     Indication: GASTROINTESTINAL DISORDER PROPHYLAXIS
     Route: 065
     Dates: start: 20180102
  2. SALINE [Concomitant]
     Active Substance: SODIUM CHLORIDE
     Indication: HYPERCALCAEMIA
     Route: 065
     Dates: start: 20190103, end: 20190105
  3. GLUCOSE [Concomitant]
     Active Substance: DEXTROSE
     Route: 065
     Dates: start: 20190117, end: 20190117
  4. PROPOFOL. [Concomitant]
     Active Substance: PROPOFOL
     Route: 065
     Dates: start: 20190120, end: 20190120
  5. MIDAZOLAM [Concomitant]
     Active Substance: MIDAZOLAM HYDROCHLORIDE
     Dosage: ANESTHETIC
     Route: 065
     Dates: start: 20190119, end: 20190119
  6. REMIFENTANIL [Concomitant]
     Active Substance: REMIFENTANIL
     Dosage: ANESTHETIC
     Route: 065
     Dates: start: 20190119, end: 20190123
  7. OBINUTUZUMAB. [Suspect]
     Active Substance: OBINUTUZUMAB
     Indication: NON-HODGKIN^S LYMPHOMA
     Dosage: THIS WAS ALSO THE MOST RECENT DOSE OF OBINUTUZUMAB
     Route: 042
     Dates: start: 20190111
  8. BETAMETHASONE. [Concomitant]
     Active Substance: BETAMETHASONE
     Dosage: TRANSFUSION PREMEDICATION
     Route: 065
     Dates: start: 20190110, end: 20190110
  9. TAZOCIN [Concomitant]
     Active Substance: PIPERACILLIN SODIUM\TAZOBACTAM SODIUM
     Dosage: BACTERIAL PROPHYLAXIS
     Route: 065
     Dates: start: 20190118, end: 20190126
  10. RO 7082859 (CD20/C3 T-CELL BISPECIFIC MAB) [Suspect]
     Active Substance: INVESTIGATIONAL PRODUCT
     Indication: NON-HODGKIN^S LYMPHOMA
     Dosage: THIS WAS ALSO THE MOST RECENT DOSE OF RO 7082859 (CD20/C3 T-CELL BISPECIFIC MAB)
     Route: 042
     Dates: start: 20190117
  11. RANITIDINE. [Concomitant]
     Active Substance: RANITIDINE
     Dosage: TLS PROPHYLAXIS
     Route: 065
     Dates: start: 20190102, end: 20190102
  12. PLATELETS [Concomitant]
     Active Substance: HUMAN PLATELET, ALLOGENIC
     Indication: THROMBOCYTOPENIA
     Dosage: 1 POOL
     Route: 065
     Dates: start: 20190110, end: 20190110
  13. MAGNESIUM SULFATE. [Concomitant]
     Active Substance: MAGNESIUM SULFATE
     Indication: THROMBOCYTOPENIA
     Route: 065
     Dates: start: 20190104, end: 20190105
  14. TOCILIZUMAB. [Suspect]
     Active Substance: TOCILIZUMAB
     Dosage: 3 VIALS
     Route: 042
     Dates: start: 20190118
  15. FUROSEMID [Concomitant]
     Active Substance: FUROSEMIDE
     Indication: HYPERCALCAEMIA
     Route: 065
     Dates: start: 20180103, end: 20180105
  16. RANITIDINE. [Concomitant]
     Active Substance: RANITIDINE
     Route: 065
     Dates: start: 20190109, end: 20190116
  17. ETHACRYNIC ACID. [Concomitant]
     Active Substance: ETHACRYNIC ACID
     Indication: HYPERCALCAEMIA
     Route: 065
     Dates: start: 20190105, end: 20190105
  18. FOLIC ACID. [Concomitant]
     Active Substance: FOLIC ACID
     Indication: ANAEMIA
     Route: 065
     Dates: start: 20190102
  19. ADENURIC [Concomitant]
     Active Substance: FEBUXOSTAT
     Indication: HYPERURICAEMIA
     Route: 065
     Dates: start: 20190102
  20. ISORAM [Concomitant]
     Route: 065
     Dates: start: 20190127
  21. LIPOFUNDIN [Concomitant]
     Active Substance: EGG PHOSPHOLIPIDS\GLYCERIN\SOYBEAN OIL
     Route: 065
     Dates: start: 20190127
  22. TOCILIZUMAB. [Suspect]
     Active Substance: TOCILIZUMAB
     Dosage: 3 VIALS
     Route: 042
     Dates: start: 20190119
  23. ZOLEDRONIC ACID [Concomitant]
     Active Substance: ZOLEDRONIC ACID
     Indication: HYPERCALCAEMIA
     Route: 065
     Dates: start: 20180102, end: 20180102
  24. BICARBONATE [Concomitant]
     Active Substance: SODIUM BICARBONATE
     Route: 065
     Dates: start: 20190117, end: 20190117
  25. FUROSEMID [Concomitant]
     Active Substance: FUROSEMIDE
     Dosage: STIMULATED URINARY EXCRETION
     Route: 065
     Dates: start: 20190124
  26. RASBURICASE [Concomitant]
     Active Substance: RASBURICASE
     Route: 065
     Dates: start: 20190102, end: 20190121
  27. ACYCLOVIR. [Concomitant]
     Active Substance: ACYCLOVIR
     Route: 065
     Dates: start: 20190102
  28. VITAMIN K [Concomitant]
     Active Substance: PHYTONADIONE
     Route: 065
     Dates: start: 20190117, end: 20190120
  29. GLUCOSE [Concomitant]
     Active Substance: DEXTROSE
     Route: 065
     Dates: start: 20190118, end: 20190118
  30. RBC TRANSFUSION [Concomitant]
     Indication: ANAEMIA
     Route: 065
     Dates: start: 20190115, end: 20190115
  31. PLATELETS [Concomitant]
     Active Substance: HUMAN PLATELET, ALLOGENIC
     Dosage: 1 POOL
     Route: 065
     Dates: start: 20190113, end: 20190113
  32. TOCILIZUMAB. [Suspect]
     Active Substance: TOCILIZUMAB
     Indication: CYTOKINE RELEASE SYNDROME
     Dosage: 3 VIALS
     Route: 042
     Dates: start: 20190117
  33. RBC TRANSFUSION [Concomitant]
     Route: 065
     Dates: start: 20190118, end: 20190118

REACTIONS (3)
  - Hypovolaemic shock [Fatal]
  - Tumour lysis syndrome [Recovered/Resolved with Sequelae]
  - Cytokine release syndrome [Recovered/Resolved]

NARRATIVE: CASE EVENT DATE: 20190117
